FAERS Safety Report 25898326 (Version 1)
Quarter: 2025Q4

REPORT INFORMATION
  Report Type: Spontaneous
  Country: US (occurrence: US)
  Receive Date: 20251008
  Receipt Date: 20251008
  Transmission Date: 20260118
  Serious: Yes (Other)
  Sender: AMGEN
  Company Number: US-AMGEN-USASL2025196513

PATIENT
  Age: 52 Year
  Sex: Female
  Weight: 48.5 kg

DRUGS (14)
  1. PREDNISONE [Suspect]
     Active Substance: PREDNISONE
     Indication: Product used for unknown indication
     Dosage: 5 MILLIGRAM, QD, (1 TO 2 TABLETS AS NEEDED)
     Route: 065
  2. ALBUTEROL SULFATE [Concomitant]
     Active Substance: ALBUTEROL SULFATE
     Dosage: UNK, (EVERY 4 TO 6 HOURS AS NEEDED)
     Route: 048
  3. ATOMOXETINE [Concomitant]
     Active Substance: ATOMOXETINE
     Dosage: 40 MILLIGRAM, QD
     Route: 048
  4. BUDESONIDE\FORMOTEROL [Concomitant]
     Active Substance: BUDESONIDE\FORMOTEROL
     Dosage: UNK UNK, BID, (INHALE TWO PUFFS)
     Route: 048
  5. CLARITIN [Concomitant]
     Active Substance: LORATADINE
     Dosage: UNK
     Route: 065
  6. ESTRADIOL [Concomitant]
     Active Substance: ESTRADIOL
     Dosage: 1 GRAM, Q2WK
     Route: 067
  7. FLONASE ALLERGY RELIEF [Concomitant]
     Active Substance: FLUTICASONE PROPIONATE
     Dosage: UNK
     Route: 065
  8. FLUOROMETHOLONE [Concomitant]
     Active Substance: FLUOROMETHOLONE
     Dosage: UNK UNK, QID, (1 DROP INTO AFFETCED EYE)
     Route: 047
  9. FOLIC ACID [Concomitant]
     Active Substance: FOLIC ACID
     Dosage: 1 MILLIGRAM, QD
     Route: 048
  10. METHOTREXATE SODIUM [Concomitant]
     Active Substance: METHOTREXATE SODIUM
     Dosage: 2.5 MILLIGRAM, (6 TABLETS BY ALL AT ONCE 1 DAY WEEK)
     Route: 048
  11. PROGESTERONE [Concomitant]
     Active Substance: PROGESTERONE
     Dosage: 100 MILLIGRAM, QD
     Route: 048
  12. XDEMVY [Concomitant]
     Active Substance: LOTILANER
     Dosage: UNK UNK, Q12H
     Route: 047
  13. INFLUENZA VIRUS VACCINE [Concomitant]
     Active Substance: INFLUENZA VIRUS VACCINE
     Dosage: UNK
     Route: 065
     Dates: start: 2024
  14. COVID-19 vaccine [Concomitant]
     Dosage: UNK
     Route: 065
     Dates: start: 2020

REACTIONS (12)
  - Rheumatoid arthritis [Unknown]
  - Hypoaesthesia [Unknown]
  - Fatigue [Unknown]
  - Brain fog [Recovering/Resolving]
  - Hepatitis B antibody abnormal [Unknown]
  - Blood creatinine increased [Unknown]
  - Lymphadenopathy [Unknown]
  - Anxiety [Unknown]
  - Nodule [Unknown]
  - Dyspnoea exertional [Unknown]
  - Blepharitis [Unknown]
  - Paraesthesia [Unknown]

NARRATIVE: CASE EVENT DATE: 20250417
